FAERS Safety Report 20659989 (Version 1)
Quarter: 2022Q1

REPORT INFORMATION
  Report Type: Spontaneous
  Country: US (occurrence: US)
  Receive Date: 20220331
  Receipt Date: 20220331
  Transmission Date: 20220423
  Serious: Yes (Other)
  Sender: FDA-Public Use
  Company Number: US-SLATE RUN PHARMACEUTICALS-22US000999

PATIENT

DRUGS (10)
  1. CINACALCET HYDROCHLORIDE [Interacting]
     Active Substance: CINACALCET HYDROCHLORIDE
     Indication: Blood calcium increased
     Dosage: RECHALLENGED
     Route: 048
  2. CINACALCET HYDROCHLORIDE [Interacting]
     Active Substance: CINACALCET HYDROCHLORIDE
     Dosage: 30 MILLIGRAM, QD
     Route: 048
  3. CINACALCET HYDROCHLORIDE [Interacting]
     Active Substance: CINACALCET HYDROCHLORIDE
     Dosage: 30 MILLIGRAM, 3/WEEK
     Route: 048
  4. CLOZAPINE [Interacting]
     Active Substance: CLOZAPINE
     Indication: Psychotic symptom
     Dosage: 250 MILLIGRAM, BEDTIME
  5. CLOZAPINE [Interacting]
     Active Substance: CLOZAPINE
     Dosage: 150 MILLIGRAM, MORNING
  6. CLOZAPINE [Interacting]
     Active Substance: CLOZAPINE
     Dosage: 125 MILLIGRAM, MORNING
  7. CLOZAPINE [Interacting]
     Active Substance: CLOZAPINE
     Dosage: 150 MILLIGRAM, MORNING
  8. BENZTROPINE [Suspect]
     Active Substance: BENZTROPINE
     Indication: Product used for unknown indication
     Dosage: 1 MILLIGRAM, BID
     Route: 048
  9. BENZTROPINE [Suspect]
     Active Substance: BENZTROPINE
     Dosage: 1 MILLIGRAM, BID
     Route: 048
  10. BENZTROPINE [Suspect]
     Active Substance: BENZTROPINE
     Dosage: 0.5 MILLIGRAM, QD
     Route: 048

REACTIONS (5)
  - Torticollis [Recovered/Resolved]
  - Drug interaction [Recovered/Resolved]
  - Psychotic symptom [Unknown]
  - Off label use [Recovered/Resolved]
  - Dizziness [Unknown]
